FAERS Safety Report 16231620 (Version 1)
Quarter: 2019Q2

REPORT INFORMATION
  Report Type: Spontaneous
  Country: FR (occurrence: FR)
  Receive Date: 20190424
  Receipt Date: 20190424
  Transmission Date: 20190711
  Serious: Yes (Other)
  Sender: FDA-Public Use
  Company Number: FR-AUROBINDO-AUR-APL-2019-021707

PATIENT

DRUGS (5)
  1. HYDROXYCHLOROQUINE [Suspect]
     Active Substance: HYDROXYCHLOROQUINE
     Indication: MYELODYSPLASTIC SYNDROME
     Dosage: UNK
     Route: 065
  2. PREDNISONE TABLET [Suspect]
     Active Substance: PREDNISONE
     Indication: MYELODYSPLASTIC SYNDROME
     Dosage: 50 MILLIGRAM, ONCE A DAY
     Route: 065
  3. RITUXIMAB. [Suspect]
     Active Substance: RITUXIMAB
     Indication: MYELODYSPLASTIC SYNDROME
     Dosage: UNK
     Route: 065
  4. METHYLPREDNISOLONE. [Suspect]
     Active Substance: METHYLPREDNISOLONE
     Indication: MYELODYSPLASTIC SYNDROME
     Dosage: 1 GRAM, (1G/3D)
     Route: 065
  5. MYCOPHENOLATE MOFETIL. [Concomitant]
     Active Substance: MYCOPHENOLATE MOFETIL
     Indication: MYELODYSPLASTIC SYNDROME
     Dosage: UNK
     Route: 065

REACTIONS (2)
  - Therapeutic product effect variable [Not Recovered/Not Resolved]
  - Drug dependence [Not Recovered/Not Resolved]
